FAERS Safety Report 15471515 (Version 1)
Quarter: 2018Q4

REPORT INFORMATION
  Report Type: Spontaneous
  Country: TN (occurrence: TN)
  Receive Date: 20181007
  Receipt Date: 20181007
  Transmission Date: 20190205
  Serious: Yes (Other)
  Sender: FDA-Public Use
  Company Number: TN-UNICHEM PHARMACEUTICALS (USA) INC-UCM201809-000239

PATIENT
  Age: 51 Year
  Sex: Male

DRUGS (1)
  1. PIROXICAM. [Suspect]
     Active Substance: PIROXICAM
     Route: 048

REACTIONS (1)
  - Erosive oesophagitis [Recovered/Resolved]
